FAERS Safety Report 10016449 (Version 1)
Quarter: 2014Q1

REPORT INFORMATION
  Report Type: Report from Study
  Country: US (occurrence: US)
  Receive Date: 20140317
  Receipt Date: 20140317
  Transmission Date: 20141002
  Serious: Yes (Other)
  Sender: FDA-Public Use
  Company Number: US-ABBVIE-14P-163-1209509-00

PATIENT
  Age: 60 Year
  Sex: Female
  Weight: 50.85 kg

DRUGS (17)
  1. HUMIRA [Suspect]
     Indication: RHEUMATOID ARTHRITIS
     Dates: start: 2008
  2. PLAQUENIL [Concomitant]
     Indication: RHEUMATOID ARTHRITIS
     Dates: end: 201303
  3. CELEBREX [Concomitant]
     Indication: RHEUMATOID ARTHRITIS
  4. TRAZADONE [Concomitant]
     Indication: INSOMNIA
  5. FOSAMAX [Concomitant]
     Indication: OSTEOPOROSIS
  6. AMMONIUM LACTATE [Concomitant]
     Indication: DRY SKIN
     Route: 061
  7. CALCIUM ACETATE [Concomitant]
     Indication: OSTEOPOROSIS
  8. VITAMIN D [Concomitant]
     Indication: OSTEOPOROSIS
  9. REFRESH [Concomitant]
     Indication: DRY EYE
  10. LUTEIN [Concomitant]
     Indication: PROPHYLAXIS
     Dates: start: 2014
  11. LUTEIN [Concomitant]
     Indication: FAMILIAL RISK FACTOR
  12. LUTEIN [Concomitant]
     Indication: EYE DISORDER
  13. ZYRTEC [Concomitant]
     Indication: CHRONIC SINUSITIS
  14. FLONASE [Concomitant]
     Indication: CHRONIC SINUSITIS
  15. SUDAFED [Concomitant]
     Indication: CHRONIC SINUSITIS
  16. MULTIVITAMIN [Concomitant]
     Indication: PRODUCT USED FOR UNKNOWN INDICATION
  17. ZOMIG [Concomitant]
     Indication: MIGRAINE
     Dosage: NOT OFTEN MORE

REACTIONS (10)
  - Visual impairment [Not Recovered/Not Resolved]
  - Colour blindness [Unknown]
  - Visual field defect [Not Recovered/Not Resolved]
  - Visual impairment [Not Recovered/Not Resolved]
  - Visual field defect [Not Recovered/Not Resolved]
  - Optic atrophy [Not Recovered/Not Resolved]
  - Optic neuritis [Not Recovered/Not Resolved]
  - Intervertebral disc protrusion [Recovering/Resolving]
  - Neuropathy peripheral [Recovering/Resolving]
  - Migraine with aura [Unknown]
